FAERS Safety Report 21493032 (Version 1)
Quarter: 2022Q4

REPORT INFORMATION
  Report Type: Spontaneous
  Country: US (occurrence: US)
  Receive Date: 20221021
  Receipt Date: 20221021
  Transmission Date: 20230113
  Serious: Yes (Other)
  Sender: FDA-Public Use
  Company Number: US-TEVA-2022-US-2816762

PATIENT
  Age: 5 Decade
  Sex: Female

DRUGS (2)
  1. NORA BE [Suspect]
     Active Substance: NORETHINDRONE
     Indication: Oral contraception
     Dosage: .35 MILLIGRAM DAILY; 0.35 MG
     Route: 065
  2. JUNEL FE 1/20 [Suspect]
     Active Substance: ETHINYL ESTRADIOL\NORETHINDRONE ACETATE
     Indication: Product used for unknown indication
     Dosage: 1-20 MG-MCG
     Route: 065
     Dates: start: 201902, end: 202209

REACTIONS (2)
  - Eye haemorrhage [Recovered/Resolved]
  - Eye disorder [Unknown]

NARRATIVE: CASE EVENT DATE: 20220601
